FAERS Safety Report 13455041 (Version 2)
Quarter: 2017Q2

REPORT INFORMATION
  Report Type: Spontaneous
  Country: US (occurrence: US)
  Receive Date: 20170419
  Receipt Date: 20170424
  Transmission Date: 20170830
  Serious: No
  Sender: FDA-Public Use
  Company Number: US-JNJFOC-20170325139

PATIENT
  Sex: Female

DRUGS (7)
  1. TYLENOL EXTRA STRENGTH [Suspect]
     Active Substance: ACETAMINOPHEN
     Indication: SCIATICA
     Dosage: DAILY
     Route: 048
  2. TYLENOL EXTRA STRENGTH [Suspect]
     Active Substance: ACETAMINOPHEN
     Indication: SCIATICA
     Route: 048
  3. LEVOTHYROXINE. [Concomitant]
     Active Substance: LEVOTHYROXINE
     Indication: HYPOTHYROIDISM
     Dosage: .088MG/1 PER DAY, YEARS
     Route: 065
  4. HYDROXYZINE [Concomitant]
     Active Substance: HYDROXYZINE HYDROCHLORIDE
     Indication: BLOOD PRESSURE MEASUREMENT
     Dosage: 25MG/1X PER DAY, YEARS
     Route: 065
  5. GABAPENTIN. [Concomitant]
     Active Substance: GABAPENTIN
     Indication: SCIATICA
     Dosage: 300MG/2 PER DAY, YEARS
     Route: 065
  6. TYLENOL EXTRA STRENGTH [Suspect]
     Active Substance: ACETAMINOPHEN
     Indication: ARTHRALGIA
     Dosage: DAILY
     Route: 048
  7. TYLENOL EXTRA STRENGTH [Suspect]
     Active Substance: ACETAMINOPHEN
     Indication: ARTHRALGIA
     Route: 048

REACTIONS (2)
  - Vision blurred [Not Recovered/Not Resolved]
  - Incorrect dose administered [Unknown]
